FAERS Safety Report 6649856-2 (Version None)
Quarter: 2010Q1

REPORT INFORMATION
  Report Type: 
  Country: None (occurrence: None)
  Receive Date: 20100325
  Receipt Date: 20100316
  Transmission Date: 20100710
  Serious: Yes (Hospitalization)
  Sender: FDA-Public Use
  Company Number: US-BIOGENIDEC-2010BI009113

PATIENT
  Age: 56 Year
  Sex: Female

DRUGS (1)
  1. TYSABRI [Suspect]
     Indication: MULTIPLE SCLEROSIS
     Route: 042
     Dates: start: 20070205

REACTIONS (6)
  - ABDOMINAL PAIN [None]
  - ASTHENIA [None]
  - BACK DISORDER [None]
  - JOINT INJURY [None]
  - POSTMENOPAUSAL HAEMORRHAGE [None]
  - ROTATOR CUFF SYNDROME [None]
